FAERS Safety Report 6160889-5 (Version None)
Quarter: 2009Q2

REPORT INFORMATION
  Report Type: 
  Country: None (occurrence: None)
  Receive Date: 20090417
  Receipt Date: 20090417
  Transmission Date: 20091009
  Serious: Yes (Hospitalization)
  Sender: FDA-Public Use
  Company Number: None

PATIENT
  Age: 26 Year
  Sex: Female
  Weight: 52 kg

DRUGS (1)
  1. MEDROXYPROGESTERONE [Suspect]
     Indication: CONTRACEPTION
     Dosage: 150 MG EVERY 3 MONTHS IM PRIOR TO ADMISSION
     Route: 030

REACTIONS (1)
  - PULMONARY EMBOLISM [None]
